FAERS Safety Report 8845919 (Version 1)
Quarter: 2012Q4

REPORT INFORMATION
  Report Type: 
  Country: US (occurrence: US)
  Receive Date: 20121017
  Receipt Date: 20121017
  Transmission Date: 20130627
  Serious: Yes (Hospitalization)
  Sender: FDA-Public Use
  Company Number: US-ASTRAZENECA-2012SE77608

PATIENT
  Age: 76 Year
  Sex: Female

DRUGS (3)
  1. SYMBICORT PMDI [Suspect]
     Route: 055
  2. ALBUTEROL [Concomitant]
  3. PREDNISONE [Concomitant]

REACTIONS (2)
  - Dyspnoea [Unknown]
  - Fluid retention [Unknown]
